FAERS Safety Report 8953408 (Version 3)
Quarter: 2012Q4

REPORT INFORMATION
  Report Type: 
  Country: US (occurrence: US)
  Receive Date: 20121206
  Receipt Date: 20121219
  Transmission Date: 20130627
  Serious: No
  Sender: FDA-Public Use
  Company Number: US-009507513-1211USA011970

PATIENT
  Age: 81 Year
  Sex: Male

DRUGS (4)
  1. JANUVIA [Suspect]
     Dosage: UNK, Unknown
     Route: 048
  2. JANUMET XR [Suspect]
     Indication: DIABETES MELLITUS
     Dosage: 50mg/1000 mg; frequency unspecified
     Route: 048
     Dates: start: 20121126, end: 20121130
  3. METFORMIN [Concomitant]
  4. GLIPIZIDE [Concomitant]

REACTIONS (2)
  - Blood glucose abnormal [Unknown]
  - Overdose [Unknown]
